FAERS Safety Report 16274571 (Version 1)
Quarter: 2019Q2

REPORT INFORMATION
  Report Type: Spontaneous
  Country: US (occurrence: US)
  Receive Date: 20190503
  Receipt Date: 20190503
  Transmission Date: 20190711
  Serious: Yes (Death)
  Sender: FDA-Public Use
  Company Number: None

PATIENT
  Age: 79 Year
  Sex: Female

DRUGS (2)
  1. PROTONIX [Concomitant]
     Active Substance: PANTOPRAZOLE SODIUM
  2. GLEEVEC [Suspect]
     Active Substance: IMATINIB MESYLATE
     Indication: BENIGN SOFT TISSUE NEOPLASM
     Route: 048
     Dates: start: 20180301

REACTIONS (1)
  - Death [None]

NARRATIVE: CASE EVENT DATE: 20190227
